FAERS Safety Report 5297205-7 (Version None)
Quarter: 2007Q2

REPORT INFORMATION
  Report Type: 
  Country: None (occurrence: None)
  Receive Date: 20070416
  Receipt Date: 20070403
  Transmission Date: 20071010
  Serious: Yes (Hospitalization)
  Sender: FDA-Public Use
  Company Number: FR-JNJFOC-20070101903

PATIENT
  Age: 52 Year
  Sex: Female
  Weight: 108 kg

DRUGS (9)
  1. REMICADE [Suspect]
     Route: 042
  2. REMICADE [Suspect]
     Dosage: 4TH INFUSION
     Route: 042
  3. REMICADE [Suspect]
     Dosage: 3RD INFUSION
     Route: 042
  4. REMICADE [Suspect]
     Dosage: 2ND INFUSION
     Route: 042
  5. REMICADE [Suspect]
     Indication: PSORIASIS
     Dosage: 1ST INFUSION
     Route: 042
  6. STILNOX [Concomitant]
     Indication: SLEEP DISORDER THERAPY
     Route: 048
  7. ALDALIX [Concomitant]
     Indication: HYPERTENSION
     Route: 048
  8. ATARAX [Concomitant]
     Indication: ANXIETY
     Route: 048
  9. AUGMENTIN '125' [Concomitant]
     Indication: BRONCHITIS
     Route: 048

REACTIONS (7)
  - BRONCHITIS [None]
  - CYTOLYTIC HEPATITIS [None]
  - DYSPNOEA [None]
  - ERYTHROSIS [None]
  - FACE OEDEMA [None]
  - PUSTULAR PSORIASIS [None]
  - SLEEP APNOEA SYNDROME [None]
